FAERS Safety Report 7397137-4 (Version None)
Quarter: 2011Q2

REPORT INFORMATION
  Report Type: 
  Country: None (occurrence: None)
  Receive Date: 20110406
  Receipt Date: 20110323
  Transmission Date: 20111010
  Serious: Yes (Hospitalization, Other)
  Sender: FDA-Public Use
  Company Number: B0698603A

PATIENT
  Sex: Female

DRUGS (4)
  1. BEROTEC [Concomitant]
     Indication: ASTHMA
     Route: 055
  2. ATMADISC FORTE [Suspect]
     Indication: ASTHMA
     Dosage: 2PUFF TWICE PER DAY
     Route: 055
     Dates: start: 20090901, end: 20110131
  3. SINGULAIR [Suspect]
     Indication: ASTHMA
     Route: 065
  4. XOLAIR [Suspect]
     Indication: ASTHMA
     Route: 065

REACTIONS (4)
  - EPIGLOTTITIS [None]
  - COUGH [None]
  - LARYNGITIS [None]
  - DYSPHONIA [None]
